FAERS Safety Report 20177624 (Version 1)
Quarter: 2021Q4

REPORT INFORMATION
  Report Type: Spontaneous
  Country: US (occurrence: US)
  Receive Date: 20211213
  Receipt Date: 20211213
  Transmission Date: 20220303
  Serious: Yes (Hospitalization, Other)
  Sender: FDA-Public Use
  Company Number: US-SA-SAC20211208001060

PATIENT
  Age: 42 Year
  Sex: Male

DRUGS (1)
  1. CABLIVI [Suspect]
     Active Substance: CAPLACIZUMAB-YHDP
     Indication: Thrombotic thrombocytopenic purpura
     Route: 058

REACTIONS (4)
  - Pulmonary embolism [Recovering/Resolving]
  - Chest pain [Recovering/Resolving]
  - Pulmonary thrombosis [Recovering/Resolving]
  - Plasmapheresis [Recovering/Resolving]

NARRATIVE: CASE EVENT DATE: 20210623
